FAERS Safety Report 9249283 (Version 4)
Quarter: 2013Q3

REPORT INFORMATION
  Report Type: Spontaneous
  Country: IT (occurrence: IT)
  Receive Date: 20130423
  Receipt Date: 20130705
  Transmission Date: 20140515
  Serious: Yes (Disabling)
  Sender: FDA-Public Use
  Company Number: IT-MERCK-1212ITA004944

PATIENT
  Age: 37 Year
  Sex: Female
  Weight: 45 kg

DRUGS (6)
  1. SYCREST [Suspect]
     Indication: BIPOLAR DISORDER
     Dosage: 5 MG DAILY
     Route: 060
     Dates: start: 20121108, end: 20121121
  2. SYCREST [Suspect]
     Dosage: 10 MG, DAILY
     Route: 060
     Dates: start: 20121122, end: 20121129
  3. SYCREST [Suspect]
     Dosage: 15 MG, DAILY
     Route: 060
     Dates: start: 20121130, end: 20121208
  4. VALPROIC ACID [Concomitant]
     Indication: BIPOLAR DISORDER
     Dosage: 500MG DAILY
     Route: 048
  5. CLONAZEPAM [Concomitant]
     Indication: ANXIETY
     Dosage: 0.5 MG DAILY
     Route: 048
  6. CLONAZEPAM [Concomitant]
     Indication: INSOMNIA

REACTIONS (5)
  - Paraesthesia [Recovered/Resolved]
  - Pain [Recovered/Resolved]
  - Disability [Recovered/Resolved]
  - Insomnia [Recovered/Resolved]
  - Paraesthesia [Recovered/Resolved]
